FAERS Safety Report 24547021 (Version 1)
Quarter: 2024Q4

REPORT INFORMATION
  Report Type: Report from Study
  Country: US (occurrence: US)
  Receive Date: 20241025
  Receipt Date: 20241025
  Transmission Date: 20250115
  Serious: Yes (Other)
  Sender: ABBVIE
  Company Number: US-ABBVIE-5974396

PATIENT
  Sex: Male

DRUGS (11)
  1. CREON [Suspect]
     Active Substance: PANCRELIPASE AMYLASE\PANCRELIPASE LIPASE\PANCRELIPASE PROTEASE
     Indication: Flatulence
     Dosage: TIME INTERVAL: 0.33333333 DAYS: FORM STRENGTH: 36000 UNIT TWO CAPSULES OF CREON IN THE MORNING, T...
     Route: 048
     Dates: start: 2021
  2. ASPIRIN [Concomitant]
     Active Substance: ASPIRIN
     Indication: Product used for unknown indication
     Dosage: FORM STRENGTH:81 MILLIGRAM
  3. MARTESIA [Concomitant]
     Indication: Neuropathy peripheral
  4. Gastroflux [Concomitant]
     Indication: Gastrointestinal disorder
  5. Diagliptin [Concomitant]
     Indication: Diabetes mellitus
  6. ROSUVASTATIN [Concomitant]
     Active Substance: ROSUVASTATIN
     Indication: Blood cholesterol abnormal
     Dosage: FORM STRENGTH:10 MILLIGRAM
  7. FAMOTIDINE YD [Concomitant]
     Indication: Gastrointestinal disorder
  8. LORAZEPAM [Concomitant]
     Active Substance: LORAZEPAM
     Indication: Product used for unknown indication
     Dosage: FORM STRENGTH: 1 MILLIGRAM
  9. AMLODIPINE [Concomitant]
     Active Substance: AMLODIPINE BESYLATE
     Indication: Blood pressure abnormal
     Dosage: FORM STRENGTH: 5 MILLIGRAM
  10. TINACTOL [Concomitant]
     Indication: Neuropathy peripheral
     Dosage: FORM STRENGTH:600 MILLIGRAM
  11. CANDESARTAN [Concomitant]
     Active Substance: CANDESARTAN
     Indication: Blood pressure abnormal

REACTIONS (2)
  - Hepatic cancer [Recovering/Resolving]
  - Magnetic resonance imaging abnormal [Unknown]

NARRATIVE: CASE EVENT DATE: 20220101
